FAERS Safety Report 9626880 (Version 1)
Quarter: 2013Q4

REPORT INFORMATION
  Report Type: Spontaneous
  Country: GB (occurrence: GB)
  Receive Date: 20131016
  Receipt Date: 20131016
  Transmission Date: 20140711
  Serious: Yes (Other)
  Sender: FDA-Public Use
  Company Number: PHHY2013GB112008

PATIENT
  Age: 89 Year
  Sex: Female

DRUGS (3)
  1. MIRTAZAPINE [Suspect]
     Dosage: 30 MG, AT NIGHT
     Route: 048
  2. DESMOPRESSIN [Suspect]
     Dosage: 200 UG, AT NIGHT
     Route: 048
     Dates: start: 20130906, end: 20130911
  3. LANSOPRAZOLE [Concomitant]
     Dosage: 30 MG, IN THE MORNING
     Route: 048

REACTIONS (2)
  - Hyponatraemia [Recovered/Resolved]
  - Labelled drug-drug interaction medication error [Recovered/Resolved]
